FAERS Safety Report 12785040 (Version 1)
Quarter: 2016Q3

REPORT INFORMATION
  Report Type: Report from Study
  Country: DE (occurrence: DE)
  Receive Date: 20160927
  Receipt Date: 20160927
  Transmission Date: 20161109
  Serious: Yes (Hospitalization, Other)
  Sender: FDA-Public Use
  Company Number: DE-ROCHE-1831512

PATIENT
  Sex: Male
  Weight: 74 kg

DRUGS (20)
  1. FOLINIC ACID [Concomitant]
     Active Substance: LEUCOVORIN
     Indication: COLORECTAL CANCER
     Route: 042
     Dates: start: 20160719, end: 20160913
  2. NOVAMINSULFON [Concomitant]
     Active Substance: METAMIZOLE
     Dosage: FOUR TIMES DAILY, AS REQUIRED
     Route: 048
     Dates: start: 20160808
  3. OXALIPLATIN. [Concomitant]
     Active Substance: OXALIPLATIN
     Indication: COLORECTAL CANCER
     Route: 042
     Dates: start: 20160719, end: 20160913
  4. AMLODIGAMMA [Concomitant]
     Indication: HYPERTENSION
     Route: 048
     Dates: start: 20160315
  5. BEVACIZUMAB [Suspect]
     Active Substance: BEVACIZUMAB
     Indication: COLORECTAL CANCER METASTATIC
     Dosage: MOST RECENT DOSE: 13/SEP/2016
     Route: 042
     Dates: start: 20160719
  6. FENTANYL. [Concomitant]
     Active Substance: FENTANYL
     Route: 062
     Dates: start: 20160816
  7. MCP [Concomitant]
     Active Substance: METOCLOPRAMIDE HYDROCHLORIDE
     Indication: PROPHYLACTIC CHEMOTHERAPY
     Dosage: DAY ONE OF CYCLE
     Route: 048
     Dates: start: 20160719
  8. MCP [Concomitant]
     Active Substance: METOCLOPRAMIDE HYDROCHLORIDE
     Dosage: DAY 2 AND DAY 3 OF CYCLE
     Route: 048
     Dates: start: 20160719
  9. LOPERAMID [Concomitant]
     Active Substance: LOPERAMIDE
     Indication: DIARRHOEA
     Dosage: AS REQUIRED
     Route: 048
     Dates: start: 20160315
  10. PANTOPRAZOL [Concomitant]
     Active Substance: PANTOPRAZOLE SODIUM
     Route: 048
     Dates: start: 20160621, end: 20160819
  11. SALOFALK [Concomitant]
     Active Substance: MESALAMINE
     Route: 048
     Dates: start: 20160621, end: 20160817
  12. 5-FLUOROURACIL [Concomitant]
     Active Substance: FLUOROURACIL
     Indication: COLORECTAL CANCER
     Route: 040
     Dates: start: 20160719, end: 20160913
  13. LONQUEX [Concomitant]
     Active Substance: LIPEGFILGRASTIM
     Indication: PROPHYLAXIS
     Dosage: DAY 4 OF CYCLE
     Route: 058
     Dates: start: 20160818
  14. FORTECORTIN [Concomitant]
     Active Substance: DEXAMETHASONE
     Indication: PROPHYLACTIC CHEMOTHERAPY
     Dosage: DAY 2 AND DAY 3 OF CYCLE
     Route: 048
     Dates: start: 20160719
  15. GRANISETRON [Concomitant]
     Active Substance: GRANISETRON
     Indication: PROPHYLACTIC CHEMOTHERAPY
     Dosage: DAY 2 AND DAY 3 OF CYCLE
     Route: 048
     Dates: start: 20160719
  16. KALINOR [Concomitant]
     Active Substance: POTASSIUM CITRATE
     Indication: HYPOCALCAEMIA
     Route: 048
     Dates: start: 20160913, end: 20160913
  17. 5-FLUOROURACIL [Concomitant]
     Active Substance: FLUOROURACIL
     Route: 041
     Dates: start: 20160719, end: 20160915
  18. FENTANYL. [Concomitant]
     Active Substance: FENTANYL
     Indication: ABDOMINAL PAIN
     Route: 062
     Dates: start: 20160714, end: 20160816
  19. NOVAMINSULFON [Concomitant]
     Active Substance: METAMIZOLE
     Indication: ABDOMINAL PAIN
     Dosage: FOUR TIMES DAILY, AS REQUIRED
     Route: 048
     Dates: start: 20160621, end: 20160807
  20. QUANTALAN [Concomitant]
     Active Substance: CHOLESTYRAMINE
     Indication: DIARRHOEA
     Route: 048
     Dates: start: 20160816

REACTIONS (3)
  - Proctitis [Not Recovered/Not Resolved]
  - Intestinal haemorrhage [Recovered/Resolved]
  - Proteinuria [Not Recovered/Not Resolved]

NARRATIVE: CASE EVENT DATE: 20160914
